FAERS Safety Report 24074866 (Version 1)
Quarter: 2024Q3

REPORT INFORMATION
  Report Type: Spontaneous
  Country: TR (occurrence: TR)
  Receive Date: 20240710
  Receipt Date: 20240710
  Transmission Date: 20241016
  Serious: No
  Sender: PIERRE FABRE MEDICAMENT
  Company Number: TR-PFM-2024-00094

PATIENT
  Age: 6 Hour
  Sex: Female

DRUGS (6)
  1. PROPRANOLOL [Suspect]
     Active Substance: PROPRANOLOL HYDROCHLORIDE
     Indication: Junctional ectopic tachycardia
     Dosage: 2 MG/KG/DAY
     Route: 065
  2. PROPRANOLOL [Suspect]
     Active Substance: PROPRANOLOL HYDROCHLORIDE
     Indication: Off label use
  3. IVABRADINE [Concomitant]
     Active Substance: IVABRADINE
     Indication: Junctional ectopic tachycardia
     Dosage: 0.05 MG/KG, BID (2/DAY)
     Route: 065
  4. AMIODARONE [Concomitant]
     Active Substance: AMIODARONE
     Indication: Junctional ectopic tachycardia
     Dosage: 10 MG/KG
     Route: 042
  5. AMIODARONE [Concomitant]
     Active Substance: AMIODARONE
     Dosage: MAINTENANCE DOSE OF 5MCG/KG/MIN
     Route: 042
  6. AMIODARONE [Concomitant]
     Active Substance: AMIODARONE
     Dosage: UNK
     Route: 048

REACTIONS (5)
  - Drug ineffective [Unknown]
  - Product use in unapproved indication [Unknown]
  - Product administered to patient of inappropriate age [Unknown]
  - Product use issue [Unknown]
  - Off label use [Unknown]
